FAERS Safety Report 9379541 (Version 1)
Quarter: 2013Q3

REPORT INFORMATION
  Report Type: Spontaneous
  Country: US (occurrence: US)
  Receive Date: 20130702
  Receipt Date: 20130702
  Transmission Date: 20140515
  Serious: Yes (Other)
  Sender: FDA-Public Use
  Company Number: US-BAYER-2013-079801

PATIENT
  Age: 40 Year
  Sex: Female

DRUGS (5)
  1. YAZ [Suspect]
     Indication: FLUID RETENTION
     Dosage: UNK
     Dates: start: 20100222, end: 201009
  2. YAZ [Suspect]
     Indication: DYSMENORRHOEA
  3. NIACIN [Concomitant]
     Dosage: UNK
     Dates: start: 20100927
  4. ASPIRIN [Concomitant]
  5. PHENTERMINE [Concomitant]
     Dosage: UNK
     Dates: start: 20100927

REACTIONS (1)
  - Deep vein thrombosis [None]
